FAERS Safety Report 12134299 (Version 1)
Quarter: 2016Q1

REPORT INFORMATION
  Report Type: Report from Study
  Country: MX (occurrence: MX)
  Receive Date: 20160301
  Receipt Date: 20160301
  Transmission Date: 20160526
  Serious: Yes (Other)
  Sender: FDA-Public Use
  Company Number: MX-GLAXOSMITHKLINE-MX2016GSK028667

PATIENT
  Sex: Male
  Weight: 57 kg

DRUGS (10)
  1. COMBIVENT RESPIMAT [Concomitant]
     Active Substance: ALBUTEROL SULFATE\IPRATROPIUM BROMIDE
     Indication: CHRONIC OBSTRUCTIVE PULMONARY DISEASE
     Dosage: UNK
     Route: 065
  2. CELESTONE [Concomitant]
     Active Substance: BETAMETHASONE
     Indication: INFLAMMATION
  3. ILIADIN [Concomitant]
     Indication: RHINITIS ALLERGIC
     Dosage: UNK
     Route: 065
  4. CELESTONE [Concomitant]
     Active Substance: BETAMETHASONE
     Indication: INFECTION
     Dosage: UNK
     Route: 065
  5. CIPROFLOXACINO [Concomitant]
     Indication: INFECTION
     Dosage: UNK
     Route: 065
  6. AVIANT [Concomitant]
     Indication: RHINITIS ALLERGIC
     Dosage: UNK
     Route: 065
  7. FLUTICASONE PROPIONATE+SALMETEROL XINAFOATE [Suspect]
     Active Substance: FLUTICASONE PROPIONATE\SALMETEROL XINAFOATE
     Indication: ASTHMA
     Dosage: 1 PUFF(S), BID, 50/250 MCG
     Route: 055
  8. ANORO ELLIPTA [Concomitant]
     Active Substance: UMECLIDINIUM BROMIDE\VILANTEROL TRIFENATATE
     Indication: CHRONIC OBSTRUCTIVE PULMONARY DISEASE
     Dosage: UNK
     Route: 055
     Dates: start: 20160218
  9. AVAMYS [Concomitant]
     Active Substance: FLUTICASONE FUROATE
     Indication: RHINITIS ALLERGIC
     Dosage: UNK
     Route: 065
  10. BETNOVATE [Concomitant]
     Active Substance: BETAMETHASONE
     Indication: THYROID DISORDER
     Dosage: UNK
     Route: 065

REACTIONS (5)
  - Disease progression [Not Recovered/Not Resolved]
  - Asthmatic crisis [Recovered/Resolved]
  - Decreased activity [Unknown]
  - Dysphonia [Unknown]
  - Malaise [Unknown]
